FAERS Safety Report 9929464 (Version 3)
Quarter: 2014Q1

REPORT INFORMATION
  Report Type: Spontaneous
  Country: DE (occurrence: DE)
  Receive Date: 20140227
  Receipt Date: 20140321
  Transmission Date: 20141002
  Serious: Yes (Other)
  Sender: FDA-Public Use
  Company Number: ALCN2014DE001313

PATIENT
  Age: 3 Year
  Sex: Female
  Weight: 14.5 kg

DRUGS (1)
  1. CYCLOPENTOLATE HCL [Suspect]
     Indication: MYDRIASIS
     Dosage: 2 GTT, ONCE/SINGLE
     Route: 047
     Dates: start: 20140203, end: 20140203

REACTIONS (4)
  - Pneumonia [Recovering/Resolving]
  - Pyrexia [Recovering/Resolving]
  - Nasopharyngitis [Recovered/Resolved]
  - Condition aggravated [Recovered/Resolved]
